FAERS Safety Report 23401689 (Version 2)
Quarter: 2024Q1

REPORT INFORMATION
  Report Type: Spontaneous
  Country: US (occurrence: US)
  Receive Date: 20240115
  Receipt Date: 20240223
  Transmission Date: 20240409
  Serious: Yes (Death, Hospitalization)
  Sender: FDA-Public Use
  Company Number: US-BoehringerIngelheim-2024-BI-002197

PATIENT
  Age: 64 Year
  Sex: Female
  Weight: 109.9 kg

DRUGS (1)
  1. JARDIANCE [Suspect]
     Active Substance: EMPAGLIFLOZIN
     Indication: Type 2 diabetes mellitus
     Dates: start: 20190116, end: 20231206

REACTIONS (3)
  - Fournier^s gangrene [Fatal]
  - Cardiac failure acute [Unknown]
  - Septic shock [Unknown]

NARRATIVE: CASE EVENT DATE: 20230101
